FAERS Safety Report 21308829 (Version 1)
Quarter: 2022Q3

REPORT INFORMATION
  Report Type: Spontaneous
  Country: US (occurrence: None)
  Receive Date: 20220908
  Receipt Date: 20220908
  Transmission Date: 20221027
  Serious: Yes (Hospitalization)
  Sender: FDA-Public Use
  Company Number: None

PATIENT
  Age: 40 Year
  Sex: Female
  Weight: 81 kg

DRUGS (1)
  1. HUMIRA [Suspect]
     Active Substance: ADALIMUMAB
     Indication: Psoriatic arthropathy
     Dosage: FREQUENCY : EVERY OTHER WEEK;?
     Route: 058
     Dates: start: 20220720, end: 20220831

REACTIONS (5)
  - Liver function test increased [None]
  - Blood bilirubin increased [None]
  - Cholelithiasis [None]
  - Drug-induced liver injury [None]
  - Bradycardia [None]

NARRATIVE: CASE EVENT DATE: 20220803
